FAERS Safety Report 22210418 (Version 1)
Quarter: 2023Q2

REPORT INFORMATION
  Report Type: Report from Study
  Country: US (occurrence: US)
  Receive Date: 20230414
  Receipt Date: 20230414
  Transmission Date: 20230721
  Serious: Yes (Other)
  Sender: FDA-Public Use
  Company Number: US-ABBVIE-4727919

PATIENT
  Sex: Female

DRUGS (1)
  1. VENCLEXTA [Suspect]
     Active Substance: VENETOCLAX
     Indication: Chronic lymphocytic leukaemia
     Route: 048
     Dates: start: 20221212

REACTIONS (4)
  - Pulmonary oedema [Unknown]
  - Carbon dioxide increased [Unknown]
  - Pharyngeal disorder [Recovering/Resolving]
  - Blood sodium increased [Unknown]
